FAERS Safety Report 5154079-2 (Version None)
Quarter: 2006Q4

REPORT INFORMATION
  Report Type: 
  Country: None (occurrence: None)
  Receive Date: 20061120
  Receipt Date: 20061116
  Transmission Date: 20070319
  Serious: Yes (Hospitalization)
  Sender: FDA-Public Use
  Company Number: GB-ALLERGAN-0607496US

PATIENT
  Age: 73 Year
  Sex: Female

DRUGS (1)
  1. BOTOX 100 UNITS [Suspect]
     Indication: TORTICOLLIS
     Dosage: UNK, SINGLE
     Route: 030
     Dates: start: 20061106, end: 20061106

REACTIONS (3)
  - MUSCULAR WEAKNESS [None]
  - NASOPHARYNGEAL DISORDER [None]
  - OESOPHAGEAL DISORDER [None]
